FAERS Safety Report 20781394 (Version 2)
Quarter: 2023Q4

REPORT INFORMATION
  Report Type: Spontaneous
  Country: GB (occurrence: GB)
  Receive Date: 20220504
  Receipt Date: 20231117
  Transmission Date: 20240110
  Serious: Yes (Hospitalization)
  Sender: FDA-Public Use
  Company Number: GB-TEVA-2022-GB-2033051

PATIENT
  Age: 60 Year
  Sex: Female

DRUGS (7)
  1. DEXAMETHASONE [Suspect]
     Active Substance: DEXAMETHASONE
     Indication: COVID-19
     Route: 065
  2. AMOXICILLIN [Suspect]
     Active Substance: AMOXICILLIN
     Indication: COVID-19
     Route: 042
  3. AMOXICILLIN\CLAVULANATE POTASSIUM [Suspect]
     Active Substance: AMOXICILLIN\CLAVULANATE POTASSIUM
     Indication: COVID-19
     Route: 065
  4. CLARITHROMYCIN [Suspect]
     Active Substance: CLARITHROMYCIN
     Indication: COVID-19
     Route: 065
  5. MEROPENEM [Suspect]
     Active Substance: MEROPENEM
     Indication: Klebsiella infection
     Dosage: ADMINISTERED THREE TIMES A DAY.
     Route: 065
  6. MEROPENEM [Suspect]
     Active Substance: MEROPENEM
     Indication: Klebsiella infection
     Route: 065
  7. REMDESIVIR [Concomitant]
     Active Substance: REMDESIVIR
     Indication: COVID-19
     Route: 065

REACTIONS (11)
  - Meningitis [Unknown]
  - Klebsiella infection [Unknown]
  - Enterococcal infection [Unknown]
  - Candida infection [Unknown]
  - Migraine [Unknown]
  - Diarrhoea [Unknown]
  - Septic cerebral embolism [Unknown]
  - CNS ventriculitis [Unknown]
  - Encephalitis [Unknown]
  - Drug ineffective [Unknown]
  - Off label use [Unknown]
